FAERS Safety Report 9376330 (Version 1)
Quarter: 2013Q2

REPORT INFORMATION
  Report Type: Spontaneous
  Country: US (occurrence: None)
  Receive Date: 20130628
  Receipt Date: 20130628
  Transmission Date: 20140414
  Serious: Yes (Life-Threatening)
  Sender: FDA-Public Use
  Company Number: None

PATIENT
  Age: 63 Year
  Sex: Male
  Weight: 99 kg

DRUGS (2)
  1. ANGIOMAX [Suspect]
     Indication: CORONARY ANGIOPLASTY
     Dosage: .75MG/KG/HR BOLUS IV BOLUS
     Route: 040
     Dates: start: 20130621, end: 20130621
  2. ANGIOMAX [Suspect]
     Indication: CORONARY ARTERIAL STENT INSERTION
     Dosage: .75MG/KG/HR BOLUS IV BOLUS
     Route: 040
     Dates: start: 20130621, end: 20130621

REACTIONS (2)
  - Coagulation time shortened [None]
  - Thrombosis [None]
